FAERS Safety Report 9916601 (Version 2)
Quarter: 2014Q1

REPORT INFORMATION
  Report Type: Report from Study
  Country: DE (occurrence: DE)
  Receive Date: 20140221
  Receipt Date: 20140221
  Transmission Date: 20141002
  Serious: Yes (Hospitalization)
  Sender: FDA-Public Use
  Company Number: DE-TEVA-2009007306

PATIENT
  Age: 52 Year
  Sex: Male

DRUGS (6)
  1. RIBOMUSTIN [Suspect]
     Indication: CHRONIC LYMPHOCYTIC LEUKAEMIA
     Dosage: DAY 1-2, EVERY 4 WEEKS
     Route: 042
     Dates: start: 20080304, end: 20080422
  2. RITUXIMAB [Suspect]
     Indication: CHRONIC LYMPHOCYTIC LEUKAEMIA
     Dosage: DAY 1, EVERY 4 WEEKS
     Route: 042
     Dates: start: 20080304, end: 20080422
  3. PARACETAMOL [Concomitant]
     Dates: start: 20080304, end: 20080304
  4. FENISTIL [Concomitant]
     Dates: start: 20080304, end: 20080304
  5. PREDNISOLON [Concomitant]
     Dates: start: 20080304, end: 20080304
  6. KEVATRIL [Concomitant]
     Dates: start: 20080304, end: 20080304

REACTIONS (1)
  - Neuroborreliosis [Recovered/Resolved]
